FAERS Safety Report 8305209-2 (Version None)
Quarter: 2012Q1

REPORT INFORMATION
  Report Type: 
  Country: None (occurrence: None)
  Receive Date: 20120326
  Receipt Date: 20110217
  Transmission Date: 20120608
  Serious: Yes (Other)
  Sender: FDA-Public Use
  Company Number: PHHY2011US12861

PATIENT
  Age: 68 Year
  Sex: Male

DRUGS (5)
  1. LISINOPRIL [Concomitant]
  2. WARFARIN SODIUM [Concomitant]
  3. ALLOPURINOL [Concomitant]
  4. TASIGNA [Suspect]
     Dosage: 300 MG, BID
  5. FELODIPINE [Concomitant]

REACTIONS (3)
  - FEELING ABNORMAL [None]
  - GOUT [None]
  - THROMBOSIS [None]
